FAERS Safety Report 5892306-4 (Version None)
Quarter: 2008Q3

REPORT INFORMATION
  Report Type: 
  Country: None (occurrence: None)
  Receive Date: 20080919
  Receipt Date: 20080909
  Transmission Date: 20090109
  Serious: Yes (Other)
  Sender: FDA-Public Use
  Company Number: 2008-03301

PATIENT
  Age: 75 Year
  Sex: Male
  Weight: 69.5 kg

DRUGS (4)
  1. VELCADE [Suspect]
     Indication: HEAD AND NECK CANCER
     Dosage: 1.3 MG/M2, IV BOLUS
     Route: 040
     Dates: start: 20060418, end: 20060428
  2. ROSUVASTATIN CALCIUM [Concomitant]
  3. TOLTERODINE TARTRATE [Concomitant]
  4. ZOLOFT [Concomitant]

REACTIONS (5)
  - CONDITION AGGRAVATED [None]
  - CONSTIPATION [None]
  - DEPRESSION [None]
  - LYMPHOPENIA [None]
  - MOOD ALTERED [None]
